FAERS Safety Report 11705442 (Version 1)
Quarter: 2015Q4

REPORT INFORMATION
  Report Type: Other
  Country: NL (occurrence: NL)
  Receive Date: 20151106
  Receipt Date: 20151106
  Transmission Date: 20160304
  Serious: Yes (Other)
  Sender: FDA-Public Use
  Company Number: NL-MYLANLABS-2015M1037521

PATIENT

DRUGS (2)
  1. MICROGYNON                         /00022701/ [Concomitant]
     Active Substance: ETHINYL ESTRADIOL\LEVONORGESTREL ACETATE
     Dosage: 1 DF, QD (1 KEER PER DAG 1 STUK(S))
     Route: 048
     Dates: start: 20150601
  2. TERBINAFINE 250MG [Suspect]
     Active Substance: TERBINAFINE
     Indication: ONYCHOMYCOSIS
     Dosage: 250 MG, QD (1 KEER PER DAG 1 STUK(S))
     Route: 048
     Dates: start: 20150701

REACTIONS (2)
  - Metrorrhagia [Not Recovered/Not Resolved]
  - Rash pruritic [Not Recovered/Not Resolved]

NARRATIVE: CASE EVENT DATE: 20150804
